FAERS Safety Report 20850023 (Version 1)
Quarter: 2022Q2

REPORT INFORMATION
  Report Type: Spontaneous
  Country: CA (occurrence: CA)
  Receive Date: 20220519
  Receipt Date: 20220519
  Transmission Date: 20220721
  Serious: Yes (Hospitalization, Disabling, Other)
  Sender: FDA-Public Use
  Company Number: CA-BAYER-2022A067155

PATIENT
  Age: 41 Year
  Sex: Male
  Weight: 90 kg

DRUGS (41)
  1. NAPROXEN SODIUM [Suspect]
     Active Substance: NAPROXEN SODIUM
     Indication: Product used for unknown indication
     Dosage: 600 MG, QD
     Route: 048
  2. CYCLOSPORINE [Suspect]
     Active Substance: CYCLOSPORINE
  3. HUMIRA [Suspect]
     Active Substance: ADALIMUMAB
  4. HUMIRA [Suspect]
     Active Substance: ADALIMUMAB
  5. MOTRIN [Suspect]
     Active Substance: IBUPROFEN
     Indication: Product used for unknown indication
     Dosage: 600 MG
     Route: 048
  6. OTEZLA [Suspect]
     Active Substance: APREMILAST
  7. SIMPONI [Suspect]
     Active Substance: GOLIMUMAB
  8. HYDROXYCHLOROQUINE SULFATE [Suspect]
     Active Substance: HYDROXYCHLOROQUINE SULFATE
  9. STELARA [Suspect]
     Active Substance: USTEKINUMAB
  10. ERELZI [Suspect]
     Active Substance: ETANERCEPT-SZZS
  11. GOLIMUMAB [Suspect]
     Active Substance: GOLIMUMAB
  12. ENBREL [Suspect]
     Active Substance: ETANERCEPT
  13. IBUPROFEN [Suspect]
     Active Substance: IBUPROFEN
     Indication: Psoriatic arthropathy
     Dosage: 600 MG
     Route: 048
  14. RITUXIMAB [Suspect]
     Active Substance: RITUXIMAB
  15. LEFLUNOMIDE [Suspect]
     Active Substance: LEFLUNOMIDE
  16. ORENCIA [Suspect]
     Active Substance: ABATACEPT
  17. ACETAMINOPHEN\DIPHENHYDRAMINE HYDROCHLORIDE [Concomitant]
     Active Substance: ACETAMINOPHEN\DIPHENHYDRAMINE HYDROCHLORIDE
  18. COLCHICINE [Concomitant]
     Active Substance: COLCHICINE
  19. DEXILANT [Concomitant]
     Active Substance: DEXLANSOPRAZOLE
  20. FEBUXOSTAT [Concomitant]
     Active Substance: FEBUXOSTAT
  21. GRAVOL [Concomitant]
     Active Substance: DIMENHYDRINATE
  22. NITRAZEPAM [Concomitant]
     Active Substance: NITRAZEPAM
  23. NITRAZEPAM [Concomitant]
     Active Substance: NITRAZEPAM
  24. OXYCODONE HYDROCHLORIDE [Concomitant]
     Active Substance: OXYCODONE HYDROCHLORIDE
  25. ULORIC [Concomitant]
     Active Substance: FEBUXOSTAT
  26. OXYCODONE [Concomitant]
     Active Substance: OXYCODONE
  27. IBUPROFEN [Suspect]
     Active Substance: IBUPROFEN
     Indication: Product used for unknown indication
     Dosage: 600 MG
     Route: 048
  28. OXYCODONE [Concomitant]
     Active Substance: OXYCODONE
  29. METHOTREXATE [Concomitant]
     Active Substance: METHOTREXATE
  30. LEFLUNOMIDE [Suspect]
     Active Substance: LEFLUNOMIDE
  31. FOLIC ACID [Concomitant]
     Active Substance: FOLIC ACID
  32. SULFASALAZINE [Suspect]
     Active Substance: SULFASALAZINE
  33. PREDNISONE [Concomitant]
     Active Substance: PREDNISONE
  34. APREMILAST [Suspect]
     Active Substance: APREMILAST
  35. CIMZIA [Suspect]
     Active Substance: CERTOLIZUMAB PEGOL
  36. SULFAMETHOXAZOLE [Suspect]
     Active Substance: SULFAMETHOXAZOLE
  37. USTEKINUMAB [Suspect]
     Active Substance: USTEKINUMAB
  38. REMICADE [Suspect]
     Active Substance: INFLIXIMAB
  39. FOSAMAX [Suspect]
     Active Substance: ALENDRONATE SODIUM
  40. INFLIXIMAB [Suspect]
     Active Substance: INFLIXIMAB
  41. ADALIMUMAB [Suspect]
     Active Substance: ADALIMUMAB

REACTIONS (46)
  - Mucosal inflammation [Not Recovered/Not Resolved]
  - Panniculitis [Not Recovered/Not Resolved]
  - Tendonitis [Not Recovered/Not Resolved]
  - Psoriatic arthropathy [Not Recovered/Not Resolved]
  - Synovitis [Not Recovered/Not Resolved]
  - Tenosynovitis [Not Recovered/Not Resolved]
  - Tongue disorder [Not Recovered/Not Resolved]
  - Drug ineffective [Not Recovered/Not Resolved]
  - Treatment failure [Not Recovered/Not Resolved]
  - Aspartate aminotransferase increased [Not Recovered/Not Resolved]
  - Alanine aminotransferase increased [Not Recovered/Not Resolved]
  - Alanine aminotransferase abnormal [Not Recovered/Not Resolved]
  - Off label use [Not Recovered/Not Resolved]
  - Blood parathyroid hormone decreased [Not Recovered/Not Resolved]
  - C-reactive protein increased [Not Recovered/Not Resolved]
  - Drug eruption [Not Recovered/Not Resolved]
  - General physical health deterioration [Not Recovered/Not Resolved]
  - Granuloma skin [Not Recovered/Not Resolved]
  - Hypercalcaemia [Not Recovered/Not Resolved]
  - Inflammation [Not Recovered/Not Resolved]
  - Infusion related reaction [Not Recovered/Not Resolved]
  - Mobility decreased [Not Recovered/Not Resolved]
  - Rash pruritic [Not Recovered/Not Resolved]
  - Red blood cell sedimentation rate [Not Recovered/Not Resolved]
  - Rheumatoid arthritis [Not Recovered/Not Resolved]
  - Rheumatoid nodule [Not Recovered/Not Resolved]
  - Skin necrosis [Not Recovered/Not Resolved]
  - Skin ulcer [Not Recovered/Not Resolved]
  - Ulcer [Not Recovered/Not Resolved]
  - Fatigue [Not Recovered/Not Resolved]
  - Hepatic enzyme increased [Not Recovered/Not Resolved]
  - Pain [Not Recovered/Not Resolved]
  - Peripheral swelling [Not Recovered/Not Resolved]
  - Rash [Not Recovered/Not Resolved]
  - Therapy non-responder [Not Recovered/Not Resolved]
  - Infection [Not Recovered/Not Resolved]
  - Basal cell carcinoma [Not Recovered/Not Resolved]
  - Erythema [Not Recovered/Not Resolved]
  - Enthesopathy [Not Recovered/Not Resolved]
  - Contraindicated product administered [Not Recovered/Not Resolved]
  - Drug hypersensitivity [Not Recovered/Not Resolved]
  - Drug intolerance [Not Recovered/Not Resolved]
  - Headache [Not Recovered/Not Resolved]
  - Loss of personal independence in daily activities [Not Recovered/Not Resolved]
  - Nausea [Not Recovered/Not Resolved]
  - C-reactive protein abnormal [Not Recovered/Not Resolved]
